FAERS Safety Report 16508065 (Version 1)
Quarter: 2019Q3

REPORT INFORMATION
  Report Type: Spontaneous
  Country: PT (occurrence: PT)
  Receive Date: 20190702
  Receipt Date: 20190702
  Transmission Date: 20191004
  Serious: Yes (Death)
  Sender: FDA-Public Use
  Company Number: PT-ACCORD-136160

PATIENT
  Age: 86 Year
  Sex: Male

DRUGS (6)
  1. AMLODIPINE [Suspect]
     Active Substance: AMLODIPINE BESYLATE
     Indication: HYPERTENSION
     Dosage: RECEIVED TILL 06-JUN-2019
     Route: 048
     Dates: start: 20190601
  2. LISINOPRIL. [Suspect]
     Active Substance: LISINOPRIL
     Indication: HYPERTENSION
     Dosage: RECEIVED TILL 11-JUN-2019
     Route: 048
     Dates: start: 20190604
  3. BISOPROLOL [Suspect]
     Active Substance: BISOPROLOL
     Indication: HYPERTENSION
     Dosage: RECEIVED TILL 08-JUN-2019
     Route: 048
     Dates: start: 20190604
  4. RILMENIDINE/RILMENIDINE PHOSPHATE [Concomitant]
  5. INDAPAMIDE. [Suspect]
     Active Substance: INDAPAMIDE
     Indication: HYPERTENSION
     Dosage: RECEIVED TILL 11-JUN-2019
     Route: 048
     Dates: start: 20190606
  6. FUROSEMIDE. [Concomitant]
     Active Substance: FUROSEMIDE
     Route: 042

REACTIONS (2)
  - Hypertension [Fatal]
  - Drug ineffective [Fatal]

NARRATIVE: CASE EVENT DATE: 201906
